FAERS Safety Report 20551423 (Version 4)
Quarter: 2022Q2

REPORT INFORMATION
  Report Type: Spontaneous
  Country: CA (occurrence: CA)
  Receive Date: 20220304
  Receipt Date: 20220413
  Transmission Date: 20220721
  Serious: Yes (Other)
  Sender: FDA-Public Use
  Company Number: CA-CELLTRION INC.-2021CA017712

PATIENT

DRUGS (3)
  1. INFLECTRA [Suspect]
     Active Substance: INFLIXIMAB-DYYB
     Indication: Psoriatic arthropathy
     Dosage: 600MG AT WEEK 0,2,6 AND THEN EVERY 8 WEEKS
     Route: 042
     Dates: start: 20201119
  2. INFLECTRA [Suspect]
     Active Substance: INFLIXIMAB-DYYB
     Dosage: 600MG AT WEEK 0,2,6 AND THEN EVERY 8 WEEKS
     Route: 042
     Dates: start: 20220124
  3. INFLECTRA [Suspect]
     Active Substance: INFLIXIMAB-DYYB
     Dosage: 600MG AT WEEK 0,2,6 AND THEN EVERY 8 WEEKS
     Route: 042
     Dates: start: 20220305

REACTIONS (7)
  - Fall [Unknown]
  - Contusion [Unknown]
  - Wound [Unknown]
  - COVID-19 [Unknown]
  - Rhinitis [Unknown]
  - Ear infection [Unknown]
  - Off label use [Unknown]

NARRATIVE: CASE EVENT DATE: 20220307
